FAERS Safety Report 14253915 (Version 2)
Quarter: 2018Q1

REPORT INFORMATION
  Report Type: Spontaneous
  Country: ES (occurrence: ES)
  Receive Date: 20171205
  Receipt Date: 20180109
  Transmission Date: 20180508
  Serious: Yes (Life-Threatening, Hospitalization, Congenital Anomaly)
  Sender: FDA-Public Use
  Company Number: ES-TEVA-2017-ES-829865

PATIENT
  Sex: Male

DRUGS (1)
  1. OLMESARTAN [Suspect]
     Active Substance: OLMESARTAN
     Route: 064

REACTIONS (7)
  - Hypotension [Unknown]
  - Foetal exposure during pregnancy [Recovered/Resolved]
  - Off label use [Not Recovered/Not Resolved]
  - Potter^s syndrome [Recovering/Resolving]
  - Pneumothorax [Recovering/Resolving]
  - Pulmonary hypoplasia [Recovering/Resolving]
  - Oligohydramnios [Not Recovered/Not Resolved]
